FAERS Safety Report 20798686 (Version 2)
Quarter: 2023Q1

REPORT INFORMATION
  Report Type: Spontaneous
  Country: GB (occurrence: GB)
  Receive Date: 20220507
  Receipt Date: 20230331
  Transmission Date: 20230418
  Serious: Yes (Disabling, Other)
  Sender: FDA-Public Use
  Company Number: GB-MHRA-TPP12402163C3782761YC1651156706591

PATIENT
  Age: 76 Year
  Sex: Female
  Weight: 51 kg

DRUGS (14)
  1. MONTELUKAST [Suspect]
     Active Substance: MONTELUKAST SODIUM
     Indication: Ill-defined disorder
     Dates: start: 20220428
  2. PREGABALIN [Concomitant]
     Active Substance: PREGABALIN
     Indication: Ill-defined disorder
     Dosage: TAKE ONE CAPSULE TWICE A DAY. INCREASE IN STEPS...
     Dates: start: 20220219, end: 20220330
  3. BUPRENORPHINE [Concomitant]
     Active Substance: BUPRENORPHINE
     Indication: Ill-defined disorder
     Dosage: APPLY AS NEEDED PRN FOR THE INFREQUENT OCCURENC...
     Dates: start: 20220302, end: 20220330
  4. ADCAL [Concomitant]
     Indication: Ill-defined disorder
     Dosage: TAKE ONE DAILY
     Dates: start: 20211005
  5. BACLOFEN [Concomitant]
     Active Substance: BACLOFEN
     Indication: Ill-defined disorder
     Dosage: TAKE ONE TABLET THREE TIMES A DAY
     Dates: start: 20220219, end: 20220319
  6. CAPSAICIN [Concomitant]
     Active Substance: CAPSAICIN
     Indication: Ill-defined disorder
     Dosage: APPLY 4 TIMES/DAY AS ADV BY NEUROLOGY,06.12.2017
     Dates: start: 20211005
  7. CAPSAICIN [Concomitant]
     Active Substance: CAPSAICIN
     Dates: start: 20171206
  8. CREON [Concomitant]
     Active Substance: PANCRELIPASE AMYLASE\PANCRELIPASE LIPASE\PANCRELIPASE PROTEASE
     Indication: Ill-defined disorder
     Dosage: USE AS DIRECTED  BY  HOSPITAL -TAKES ABOUT 800 ...
     Dates: start: 20211005
  9. DYMISTA [Concomitant]
     Active Substance: AZELASTINE HYDROCHLORIDE\FLUTICASONE PROPIONATE
     Indication: Ill-defined disorder
     Dosage: ONE PUFF TWICE DAILY
     Route: 055
     Dates: start: 20220428
  10. POTASSIUM BICARBONATE\SODIUM ALGINATE [Concomitant]
     Active Substance: POTASSIUM BICARBONATE\SODIUM ALGINATE
     Indication: Ill-defined disorder
     Dosage: TAKE 1 OR 2 AS NEEDED
     Dates: start: 20211005
  11. LANSOPRAZOLE [Concomitant]
     Active Substance: LANSOPRAZOLE
     Indication: Ill-defined disorder
     Dosage: TAKE ONE DAILY
     Dates: start: 20211005
  12. ACETAMINOPHEN [Concomitant]
     Active Substance: ACETAMINOPHEN
     Indication: Ill-defined disorder
     Dosage: TAKE ONE OR TWO TABLETS FOUR TIMES A DAY WHEN N...
     Dates: start: 20220219
  13. QVAR [Concomitant]
     Active Substance: BECLOMETHASONE DIPROPIONATE
     Indication: Ill-defined disorder
     Dosage: INHALE 2 PUFFS TWICE DAILY
     Dates: start: 20211005
  14. ALBUTEROL [Concomitant]
     Active Substance: ALBUTEROL
     Indication: Ill-defined disorder
     Dosage: 1 -2 PUFFS FOUR TIMES A DAY,PRN
     Dates: start: 20211005

REACTIONS (5)
  - Chromaturia [Recovered/Resolved]
  - Sleep disorder [Recovered/Resolved]
  - Myalgia [Recovered/Resolved]
  - Disturbance in attention [Recovered/Resolved]
  - Muscle spasms [Recovered/Resolved]

NARRATIVE: CASE EVENT DATE: 20220428
